FAERS Safety Report 13980870 (Version 1)
Quarter: 2017Q3

REPORT INFORMATION
  Report Type: Spontaneous
  Country: US (occurrence: US)
  Receive Date: 20170918
  Receipt Date: 20170918
  Transmission Date: 20171128
  Serious: No
  Sender: FDA-Public Use
  Company Number: US-TEVA-722260ACC

PATIENT
  Age: 84 Year
  Sex: Female
  Weight: 75.28 kg

DRUGS (7)
  1. REQUIP [Concomitant]
     Active Substance: ROPINIROLE HYDROCHLORIDE
  2. FEXOFENADINE 180 MG 571 [Suspect]
     Active Substance: FEXOFENADINE HYDROCHLORIDE
     Indication: SNEEZING
     Dosage: 180 MG, SINGLE
     Route: 048
     Dates: start: 20161018, end: 20161018
  3. CELEBREX [Concomitant]
     Active Substance: CELECOXIB
  4. BAYER ASPIRIN [Concomitant]
     Active Substance: ASPIRIN
  5. FEXOFENADINE 180 MG 571 [Suspect]
     Active Substance: FEXOFENADINE HYDROCHLORIDE
     Indication: RHINORRHOEA
     Dosage: 180 MG, TWICE
     Route: 048
     Dates: start: 20161006, end: 20161007
  6. METOPROLOL. [Concomitant]
     Active Substance: METOPROLOL
  7. VALSARTAN. [Concomitant]
     Active Substance: VALSARTAN

REACTIONS (3)
  - Drug administered to patient of inappropriate age [Unknown]
  - Extra dose administered [Unknown]
  - Drug ineffective [Recovered/Resolved]

NARRATIVE: CASE EVENT DATE: 20161006
